FAERS Safety Report 4498454-8 (Version None)
Quarter: 2004Q4

REPORT INFORMATION
  Report Type: 
  Country: None (occurrence: None)
  Receive Date: 20041105
  Receipt Date: 20041026
  Transmission Date: 20050328
  Serious: Yes (Other)
  Sender: FDA-Public Use
  Company Number: 2004084439

PATIENT
  Age: 56 Year
  Sex: Male

DRUGS (6)
  1. DOXAZOSIN MESYLATE [Suspect]
     Indication: HYPERTENSION
     Dosage: (12 MG), ORAL
     Route: 048
     Dates: start: 20010101, end: 20040601
  2. AMLODIPINE [Concomitant]
  3. RAMIPRIL [Concomitant]
  4. BECLOMETHASONE DIPROPIONATE [Concomitant]
  5. SALBUTAMOL (SALBUTAMOL) [Concomitant]
  6. ATENOLOL [Concomitant]

REACTIONS (5)
  - ASTHMA [None]
  - CHRONIC OBSTRUCTIVE AIRWAYS DISEASE EXACERBATED [None]
  - DYSPNOEA [None]
  - NASAL POLYPS [None]
  - RHINITIS [None]
